FAERS Safety Report 7907129-1 (Version None)
Quarter: 2011Q4

REPORT INFORMATION
  Report Type: 
  Country: None (occurrence: None)
  Receive Date: 20111110
  Receipt Date: 20110706
  Transmission Date: 20120403
  Serious: No
  Sender: FDA-Public Use
  Company Number: US-ASTRAZENECA-2011SE40552

PATIENT
  Age: 59 Year

DRUGS (13)
  1. NORVASC [Concomitant]
  2. PLAVIX [Concomitant]
  3. ASPIRIN [Concomitant]
  4. HYDROCHLOROTHIAZIDE [Concomitant]
     Route: 048
  5. DIOVAN [Concomitant]
  6. PERSANTINE [Concomitant]
  7. PRAVACHOL [Concomitant]
  8. NITROGLYCERIN [Concomitant]
  9. IMDUR [Concomitant]
  10. LISINOPRIL [Suspect]
     Route: 048
  11. METOPROLOL TARTRATE [Suspect]
     Route: 048
  12. OMEPRAZOLE [Suspect]
     Route: 048
  13. FENOFIBRATE [Concomitant]

REACTIONS (6)
  - HYPERTENSION [None]
  - ANGINA PECTORIS [None]
  - ARTERIOSCLEROSIS [None]
  - DRUG HYPERSENSITIVITY [None]
  - HYPERCHOLESTEROLAEMIA [None]
  - COUGH [None]
